FAERS Safety Report 11829497 (Version 1)
Quarter: 2015Q4

REPORT INFORMATION
  Report Type: Spontaneous
  Country: US (occurrence: US)
  Receive Date: 20151211
  Receipt Date: 20151211
  Transmission Date: 20160305
  Serious: Yes (Other)
  Sender: FDA-Public Use
  Company Number: US-BAUSCH-BL-2015-016120

PATIENT
  Age: 59 Year
  Sex: Female
  Weight: 63.56 kg

DRUGS (2)
  1. XENAZINE [Suspect]
     Active Substance: TETRABENAZINE
     Route: 048
     Dates: start: 20150621
  2. XENAZINE [Suspect]
     Active Substance: TETRABENAZINE
     Indication: HUNTINGTON^S DISEASE
     Route: 048
     Dates: start: 20150602

REACTIONS (6)
  - Suicidal ideation [Unknown]
  - Treatment noncompliance [Unknown]
  - Abnormal behaviour [Unknown]
  - Drug dose omission [Unknown]
  - Agitation [Recovered/Resolved]
  - Crying [Unknown]

NARRATIVE: CASE EVENT DATE: 201506
